FAERS Safety Report 8891057 (Version 2)
Quarter: 2012Q4

REPORT INFORMATION
  Report Type: 
  Country: GR (occurrence: GR)
  Receive Date: 20121107
  Receipt Date: 20121116
  Transmission Date: 20130627
  Serious: Yes (Hospitalization, Other)
  Sender: FDA-Public Use
  Company Number: GR-JNJFOC-20121102388

PATIENT
  Age: 56 Year
  Sex: Male

DRUGS (2)
  1. STELARA [Suspect]
     Indication: PSORIASIS
     Route: 058
  2. ANTIBIOTIC (UNSPECIFIED) [Concomitant]
     Indication: FEBRILE INFECTION
     Route: 065

REACTIONS (2)
  - Atrial fibrillation [Unknown]
  - Febrile infection [Unknown]
